FAERS Safety Report 10026722 (Version 1)
Quarter: 2014Q1

REPORT INFORMATION
  Report Type: Spontaneous
  Country: JP (occurrence: None)
  Receive Date: 20140318
  Receipt Date: 20140318
  Transmission Date: 20141002
  Serious: Yes (Death, Hospitalization)
  Sender: FDA-Public Use
  Company Number: JP-ALKEM-000517

PATIENT
  Age: 54 Year
  Sex: Female

DRUGS (2)
  1. MYCOPHENOLATE MOFETIL (MYCOPHENOLATE MOFETIL) [Suspect]
     Indication: PRODUCT USED FOR UNKNOWN INDICATION
  2. METHYLPREDNISOLONE (METHYLPREDNISOLONE) [Concomitant]

REACTIONS (6)
  - Progressive multifocal leukoencephalopathy [None]
  - Respiratory failure [None]
  - Dysarthria [None]
  - Ataxia [None]
  - Hemiparesis [None]
  - Nervous system disorder [None]
